FAERS Safety Report 7463915-6 (Version None)
Quarter: 2011Q2

REPORT INFORMATION
  Report Type: 
  Country: None (occurrence: None)
  Receive Date: 20110506
  Receipt Date: 20110427
  Transmission Date: 20111010
  Serious: Yes (Death, Disabling)
  Sender: FDA-Public Use
  Company Number: JP-AMGEN-JPNCT2010009640

PATIENT
  Age: 70 Year
  Sex: Male
  Weight: 47 kg

DRUGS (20)
  1. FULMETA [Concomitant]
     Dosage: UNK
     Route: 062
  2. PRIMPERAN TAB [Concomitant]
     Dosage: UNK
     Route: 048
  3. LOXONIN [Concomitant]
     Dosage: UNK
     Route: 062
  4. OXALIPLATIN [Concomitant]
     Indication: COLORECTAL CANCER
     Route: 041
     Dates: start: 20100721, end: 20100909
  5. CALCIUM LEVOFOLINATE [Concomitant]
     Indication: COLORECTAL CANCER
     Route: 041
     Dates: start: 20100721, end: 20100909
  6. OXINORM [Concomitant]
     Dosage: UNK
     Route: 048
  7. VECTIBIX [Suspect]
     Indication: COLORECTAL CANCER
     Dosage: 6 MG/KG, Q2WK
     Route: 041
     Dates: start: 20100721, end: 20100909
  8. FLUOROURACIL [Concomitant]
     Indication: COLORECTAL CANCER
     Route: 041
     Dates: start: 20100721, end: 20100909
  9. DISOPYRAMIDE PHOSPHATE [Concomitant]
     Dosage: UNK
     Route: 048
  10. KENALOG [Concomitant]
     Dosage: UNK
     Route: 048
  11. NOVAMIN [Concomitant]
     Dosage: UNK
     Route: 048
  12. PARIET [Concomitant]
     Dosage: UNK
     Route: 048
  13. BASEN 1 [Concomitant]
     Dosage: UNK
     Route: 048
  14. CORTICOSTEROIDS [Concomitant]
     Indication: PROPHYLAXIS
     Dosage: UNK
  15. DEXART [Concomitant]
     Dosage: UNK
     Route: 042
  16. HIRUDOID [Concomitant]
     Dosage: UNK
     Route: 062
  17. FLAVERIC [Concomitant]
     Dosage: UNK
     Route: 048
  18. ACTOS [Concomitant]
     Dosage: UNK
     Route: 048
  19. GLYBURIDE [Concomitant]
     Dosage: UNK
     Route: 048
  20. GRANISETRON HCL [Concomitant]
     Dosage: UNK
     Route: 042

REACTIONS (3)
  - HERPES ZOSTER [None]
  - COLORECTAL CANCER [None]
  - HEPATIC FUNCTION ABNORMAL [None]
